FAERS Safety Report 9515563 (Version 1)
Quarter: 2013Q3

REPORT INFORMATION
  Report Type: Spontaneous
  Country: US (occurrence: US)
  Receive Date: 20130911
  Receipt Date: 20130911
  Transmission Date: 20140515
  Serious: No
  Sender: FDA-Public Use
  Company Number: US-BAYER-2013-109409

PATIENT
  Age: 51 Year
  Sex: Female
  Weight: 136 kg

DRUGS (1)
  1. ALEVE CAPLET [Suspect]
     Dosage: 1 DF, QD
     Route: 048
     Dates: start: 2012

REACTIONS (2)
  - Drug ineffective [None]
  - Incorrect drug administration duration [None]
